FAERS Safety Report 7447203-X (Version None)
Quarter: 2011Q2

REPORT INFORMATION
  Report Type: 
  Country: None (occurrence: None)
  Receive Date: 20110429
  Receipt Date: 20101213
  Transmission Date: 20111010
  Serious: No
  Sender: FDA-Public Use
  Company Number: US-ASTRAZENECA-2010SE59037

PATIENT
  Sex: Female

DRUGS (6)
  1. LEXAPRO [Concomitant]
  2. NEXIUM [Suspect]
     Route: 048
  3. TOPROL-XL [Concomitant]
  4. NEXIUM [Suspect]
     Indication: ABDOMINAL PAIN
     Route: 048
     Dates: start: 20070101, end: 20091201
  5. NEXIUM [Suspect]
     Indication: PAIN
     Route: 048
     Dates: start: 20070101, end: 20091201
  6. NEXIUM [Suspect]
     Route: 048

REACTIONS (3)
  - ABDOMINAL PAIN [None]
  - DRUG DOSE OMISSION [None]
  - DIARRHOEA [None]
